FAERS Safety Report 11959228 (Version 2)
Quarter: 2016Q2

REPORT INFORMATION
  Report Type: Spontaneous
  Country: US (occurrence: US)
  Receive Date: 20160126
  Receipt Date: 20160407
  Transmission Date: 20160815
  Serious: No
  Sender: FDA-Public Use
  Company Number: US-009507513-1601USA009210

PATIENT
  Sex: Female
  Weight: 92.97 kg

DRUGS (1)
  1. BELSOMRA [Suspect]
     Active Substance: SUVOREXANT
     Indication: INSOMNIA
     Dosage: 10 MG, ONCE A DAY
     Route: 048

REACTIONS (2)
  - Abnormal dreams [Recovering/Resolving]
  - Nightmare [Unknown]
